FAERS Safety Report 7080885-3 (Version None)
Quarter: 2010Q4

REPORT INFORMATION
  Report Type: 
  Country: None (occurrence: None)
  Receive Date: 20101103
  Receipt Date: 20101020
  Transmission Date: 20110411
  Serious: Yes (Other)
  Sender: FDA-Public Use
  Company Number: US-AMGEN-US358821

PATIENT

DRUGS (3)
  1. NPLATE [Suspect]
     Indication: IDIOPATHIC THROMBOCYTOPENIC PURPURA
     Dosage: 50 A?G, UNK
     Route: 065
     Dates: start: 20090119, end: 20090508
  2. NPLATE [Suspect]
     Dates: start: 20090119, end: 20090508
  3. CORTICOSTEROID NOS [Concomitant]
     Dosage: UNK UNK, UNK
     Route: 065
     Dates: start: 20080612

REACTIONS (2)
  - SPLENECTOMY [None]
  - THERAPEUTIC RESPONSE DECREASED [None]
